FAERS Safety Report 8630801 (Version 2)
Quarter: 2014Q1

REPORT INFORMATION
  Report Type: Spontaneous
  Country: US (occurrence: US)
  Receive Date: 20120622
  Receipt Date: 20140220
  Transmission Date: 20141002
  Serious: Yes (Hospitalization, Other)
  Sender: FDA-Public Use
  Company Number: US-JNJFOC-20120607003

PATIENT
  Sex: Female
  Weight: 113.85 kg

DRUGS (18)
  1. REMICADE [Suspect]
     Indication: PSORIATIC ARTHROPATHY
     Route: 042
  2. TOVIAZ [Concomitant]
     Indication: AUTOMATIC BLADDER
     Route: 048
     Dates: start: 201204
  3. DICLOFENAC SODIUM [Concomitant]
     Indication: ARTHRITIS
     Route: 048
     Dates: start: 2011
  4. TRIAMTERENE-HCTZ [Concomitant]
     Indication: BLOOD PRESSURE
     Dosage: DOSE: 37.5-25 MG
     Route: 048
  5. ESTRADIOL [Concomitant]
     Indication: HORMONE REPLACEMENT THERAPY
     Route: 048
     Dates: start: 2012
  6. LEVOTHYROXINE [Concomitant]
     Indication: THYROID DISORDER
     Route: 048
     Dates: start: 1964
  7. JANUVIA [Concomitant]
     Indication: DIABETES MELLITUS
     Route: 048
     Dates: start: 2009
  8. METFORMIN HYDROCHLORIDE [Concomitant]
     Indication: DIABETES MELLITUS
     Route: 048
     Dates: start: 2009
  9. VERAPAMIL [Concomitant]
     Indication: MIGRAINE
     Route: 048
  10. DIVALPROEX SODIUM [Concomitant]
     Indication: MIGRAINE
     Route: 048
  11. PANTOPRAZOLE SODIUM [Concomitant]
     Indication: GASTRIC DISORDER
     Route: 048
     Dates: start: 2012
  12. SERTRALINE HCL [Concomitant]
     Indication: DEPRESSION
     Route: 048
     Dates: start: 2008
  13. GABAPENTIN [Concomitant]
     Indication: NEUROPATHY PERIPHERAL
     Route: 048
     Dates: start: 2011
  14. PRAVASTATIN SODIUM [Concomitant]
     Indication: BLOOD CHOLESTEROL
     Route: 065
  15. HYDROCODONE [Concomitant]
     Indication: PAIN
     Dosage: 10MG-650 MG
     Route: 048
     Dates: start: 2009
  16. LEVSIN [Concomitant]
     Indication: GASTRITIS
     Route: 048
  17. MAXALT [Concomitant]
     Indication: MIGRAINE
     Route: 048
     Dates: start: 2005
  18. FLUOCINONIDE [Concomitant]
     Indication: PSORIASIS
     Route: 061
     Dates: start: 2005

REACTIONS (6)
  - Arthropathy [Recovered/Resolved]
  - Basal cell carcinoma [Recovered/Resolved]
  - Blood glucose increased [Unknown]
  - Blood cholesterol increased [Unknown]
  - Arthralgia [Not Recovered/Not Resolved]
  - Weight decreased [Not Recovered/Not Resolved]
